FAERS Safety Report 10512022 (Version 1)
Quarter: 2014Q4

REPORT INFORMATION
  Report Type: Report from Study
  Country: US (occurrence: US)
  Receive Date: 20141010
  Receipt Date: 20141010
  Transmission Date: 20150528
  Serious: Yes (Death, Hospitalization)
  Sender: FDA-Public Use
  Company Number: US-JNJFOC-20141005350

PATIENT
  Age: 86 Year
  Sex: Male
  Weight: 84.5 kg

DRUGS (1)
  1. IBRUTINIB [Suspect]
     Active Substance: IBRUTINIB
     Indication: B PRECURSOR TYPE ACUTE LEUKAEMIA
     Route: 048
     Dates: start: 20140502, end: 20140503

REACTIONS (2)
  - Haemorrhage intracranial [Fatal]
  - Fall [None]

NARRATIVE: CASE EVENT DATE: 20140503
